FAERS Safety Report 22389483 (Version 1)
Quarter: 2023Q2

REPORT INFORMATION
  Report Type: Spontaneous
  Country: GB (occurrence: GB)
  Receive Date: 20230531
  Receipt Date: 20230531
  Transmission Date: 20230722
  Serious: Yes (Hospitalization, Disabling, Other)
  Sender: FDA-Public Use
  Company Number: GB-MHRA-MED-202305212304209450-YVRDZ

PATIENT
  Age: 24 Year
  Sex: Female
  Weight: 100 kg

DRUGS (1)
  1. CYMBALTA [Suspect]
     Active Substance: DULOXETINE HYDROCHLORIDE
     Indication: Product used for unknown indication
     Dosage: 40, UNK, UNKNOWN
     Route: 065
     Dates: start: 20221016

REACTIONS (4)
  - Amnesia [Not Recovered/Not Resolved]
  - Eye pain [Not Recovered/Not Resolved]
  - Dizziness [Not Recovered/Not Resolved]
  - Hypertension [Recovering/Resolving]
